FAERS Safety Report 6833852-6 (Version None)
Quarter: 2010Q3

REPORT INFORMATION
  Report Type: 
  Country: None (occurrence: None)
  Receive Date: 20100712
  Receipt Date: 20070403
  Transmission Date: 20110219
  Serious: No
  Sender: FDA-Public Use
  Company Number: US-PFIZER INC-2007028065

PATIENT
  Sex: Male
  Weight: 104.33 kg

DRUGS (8)
  1. CHANTIX [Suspect]
     Indication: SMOKING CESSATION THERAPY
     Dates: start: 20070301
  2. METOPROLOL [Concomitant]
     Indication: BLOOD PRESSURE
  3. PREVACID [Concomitant]
     Indication: ULCER
  4. CRESTOR [Concomitant]
  5. ZETIA [Concomitant]
  6. ACETYLSALICYLIC ACID [Concomitant]
  7. TYLENOL (CAPLET) [Concomitant]
     Indication: HEADACHE
  8. NITROGLYCERIN [Concomitant]

REACTIONS (2)
  - DIZZINESS [None]
  - NAUSEA [None]
